FAERS Safety Report 6071946-6 (Version None)
Quarter: 2009Q1

REPORT INFORMATION
  Report Type: 
  Country: None (occurrence: None)
  Receive Date: 20090210
  Receipt Date: 20090205
  Transmission Date: 20090719
  Serious: Yes (Hospitalization)
  Sender: FDA-Public Use
  Company Number: GR-ABBOTT-09P-066-0501815-00

PATIENT
  Age: 54 Year
  Sex: Male
  Weight: 67 kg

DRUGS (9)
  1. ZEMPLAR [Suspect]
     Indication: HYPERPARATHYROIDISM SECONDARY
     Route: 042
     Dates: start: 20070301
  2. DILATREND [Concomitant]
     Indication: ACUTE MYOCARDIAL INFARCTION
     Dosage: 1/2 TWICE PER DAY
     Route: 048
  3. SALOSPIR [Concomitant]
     Indication: ACUTE MYOCARDIAL INFARCTION
     Route: 048
  4. ARANESP [Concomitant]
     Indication: RENAL FAILURE CHRONIC
  5. ARANESP [Concomitant]
     Indication: ANAEMIA
  6. MIMPARA [Concomitant]
     Indication: DRUG USE FOR UNKNOWN INDICATION
     Route: 048
  7. FORSENOL [Concomitant]
     Indication: DRUG USE FOR UNKNOWN INDICATION
     Route: 048
  8. EVATON [Concomitant]
     Indication: DRUG USE FOR UNKNOWN INDICATION
  9. INTELLECTA [Concomitant]
     Indication: DRUG USE FOR UNKNOWN INDICATION

REACTIONS (3)
  - BACTERAEMIA [None]
  - CHILLS [None]
  - PYREXIA [None]
